FAERS Safety Report 4825984-9 (Version None)
Quarter: 2005Q4

REPORT INFORMATION
  Report Type: 
  Country: None (occurrence: None)
  Receive Date: 20051109
  Receipt Date: 20051028
  Transmission Date: 20060501
  Serious: Yes (Death, Life-Threatening, Hospitalization, Other)
  Sender: FDA-Public Use
  Company Number: 2005149293

PATIENT
  Age: 65 Year
  Sex: Male

DRUGS (2)
  1. CELEBREX [Suspect]
     Indication: CELLULITIS
     Dosage: 400 MG (200 MG, 2 IN 1 D)
     Dates: start: 20050902, end: 20050901
  2. ALL OTHER THERAPEUTIC PRODUCTS (ALL OTHER THERAPEUTIC PRODUCTS) [Concomitant]

REACTIONS (5)
  - BLOOD CREATININE INCREASED [None]
  - BLOOD UREA INCREASED [None]
  - CHOLELITHIASIS [None]
  - RENAL FAILURE [None]
  - RESPIRATORY FAILURE [None]
